FAERS Safety Report 13473622 (Version 1)
Quarter: 2017Q2

REPORT INFORMATION
  Report Type: Spontaneous
  Country: US (occurrence: US)
  Receive Date: 20170424
  Receipt Date: 20170424
  Transmission Date: 20170830
  Serious: No
  Sender: FDA-Public Use
  Company Number: US-BAYER-2017-072876

PATIENT
  Age: 20 Year
  Sex: Female

DRUGS (1)
  1. GIANVI [Suspect]
     Active Substance: DROSPIRENONE\ETHINYL ESTRADIOL
     Indication: ACNE
     Dosage: 3MG/0.02MG
     Route: 048
     Dates: start: 2009

REACTIONS (3)
  - Anxiety [None]
  - Drug effect decreased [None]
  - Emotional disorder [None]

NARRATIVE: CASE EVENT DATE: 201612
